FAERS Safety Report 22539727 (Version 2)
Quarter: 2023Q2

REPORT INFORMATION
  Report Type: Spontaneous
  Country: AM (occurrence: None)
  Receive Date: 20230609
  Receipt Date: 20230615
  Transmission Date: 20230722
  Serious: Yes (Hospitalization, Other)
  Sender: FDA-Public Use
  Company Number: AM-ROCHE-3362727

PATIENT
  Age: 11 Year
  Sex: Female

DRUGS (14)
  1. ACTEMRA [Suspect]
     Active Substance: TOCILIZUMAB
     Indication: Still^s disease
     Dosage: 1.5 YEARS, LAST INFUSION DATE WAS 14-FEB-2023.
     Route: 042
     Dates: start: 201904
  2. ACTEMRA [Suspect]
     Active Substance: TOCILIZUMAB
     Dosage: LAST INFUSION
     Route: 042
     Dates: start: 20230214
  3. SOLU-MEDROL [Concomitant]
     Active Substance: METHYLPREDNISOLONE SODIUM SUCCINATE
  4. ACETAMINOPHEN [Concomitant]
     Active Substance: ACETAMINOPHEN
  5. AMOXICILLIN [Concomitant]
     Active Substance: AMOXICILLIN
  6. VALGANCICLOVIR [Concomitant]
     Active Substance: VALGANCICLOVIR
  7. METIPRED [Concomitant]
     Active Substance: METHYLPREDNISOLONE
  8. METHOTREXATE [Concomitant]
     Active Substance: METHOTREXATE
     Dosage: 2 TO 3 MG
     Dates: start: 2017, end: 201904
  9. AMOXICILLIN [Concomitant]
     Active Substance: AMOXICILLIN
  10. METHYLPREDNISOLONE [Concomitant]
     Active Substance: METHYLPREDNISOLONE
  11. CAD3 [Concomitant]
  12. ERGOCALCIFEROL [Concomitant]
     Active Substance: ERGOCALCIFEROL
  13. DICLOFENAC [Concomitant]
     Active Substance: DICLOFENAC
  14. VALGANCICLOVIR [Concomitant]
     Active Substance: VALGANCICLOVIR

REACTIONS (11)
  - Oropharyngeal pain [Recovered/Resolved]
  - Pyrexia [Recovered/Resolved]
  - Rash [Recovered/Resolved]
  - Lymphadenopathy [Recovered/Resolved]
  - Pancytopenia [Recovered/Resolved]
  - Ill-defined disorder [Recovered/Resolved]
  - Cytomegalovirus infection [Recovered/Resolved]
  - Alanine aminotransferase increased [Recovered/Resolved]
  - Serum ferritin increased [Recovered/Resolved]
  - Splenomegaly [Recovered/Resolved]
  - Aspartate aminotransferase increased [Recovered/Resolved]

NARRATIVE: CASE EVENT DATE: 20230403
